FAERS Safety Report 4917996-1 (Version None)
Quarter: 2006Q1

REPORT INFORMATION
  Report Type: 
  Country: None (occurrence: None)
  Receive Date: 20060221
  Receipt Date: 20051003
  Transmission Date: 20060701
  Serious: Yes (Hospitalization, Other)
  Sender: FDA-Public Use
  Company Number: US-MERCK-0510USA02664

PATIENT
  Age: 41 Year
  Sex: Female
  Weight: 68 kg

DRUGS (1)
  1. VIOXX [Suspect]
     Indication: RHEUMATOID ARTHRITIS
     Route: 048
     Dates: start: 20010125, end: 20030304

REACTIONS (9)
  - ADVERSE DRUG REACTION [None]
  - CEREBROVASCULAR ACCIDENT [None]
  - CONVULSION [None]
  - COUGH [None]
  - IMMUNODEFICIENCY [None]
  - NAUSEA [None]
  - PNEUMONIA [None]
  - PYREXIA [None]
  - SINUS OPERATION [None]
